FAERS Safety Report 9124170 (Version 1)
Quarter: 2013Q1

REPORT INFORMATION
  Report Type: Spontaneous
  Country: US (occurrence: US)
  Receive Date: 20130116
  Receipt Date: 20130116
  Transmission Date: 20140127
  Serious: Yes (Life-Threatening, Hospitalization, Other)
  Sender: FDA-Public Use
  Company Number: US-009507513-1301XAA003554

PATIENT
  Age: 21 Year
  Sex: Male

DRUGS (14)
  1. SINGULAIR [Suspect]
     Dosage: BEFORE SLEEP
     Route: 048
  2. SYMBICORT [Suspect]
     Dosage: INHALATION
     Route: 055
  3. CLARITHROMYCIN [Suspect]
     Route: 048
  4. MUCOSOLATE [Suspect]
     Dosage: UNK, IN THE EVENING
     Route: 048
  5. REBAMIPIDE [Concomitant]
     Indication: BRONCHITIS CHRONIC
     Dosage: 200 MG, DAILY
     Route: 048
  6. REBAMIPIDE [Concomitant]
     Dosage: 100 MG, DAILY
     Route: 048
  7. ACETAMINOPHEN [Concomitant]
     Indication: PRODUCT USED FOR UNKNOWN INDICATION
     Route: 048
  8. LANSOPRAZOLE [Concomitant]
     Indication: SEASONAL ALLERGY
     Route: 048
  9. AZUNOL (GUAIAZULENE) [Concomitant]
     Indication: UPPER-AIRWAY COUGH SYNDROME
  10. MUCOSOLATE [Concomitant]
     Dosage: UNK, IN THE EVENING
     Route: 048
  11. SYMBICORT [Concomitant]
     Dosage: INHALATION
     Route: 055
  12. LEVOFLOXACIN [Concomitant]
     Dosage: 400 MG, DAILY
     Route: 048
  13. LEVOFLOXACIN [Concomitant]
     Dosage: 200 MG, 2 IN 1 DAY
     Route: 048
  14. THEOPHYLLINE [Concomitant]

REACTIONS (7)
  - Pyrexia [Unknown]
  - Productive cough [Unknown]
  - Myalgia [Unknown]
  - Cough [Unknown]
  - Chlamydial infection [Unknown]
  - Blood creatine phosphokinase increased [Unknown]
  - Aspartate aminotransferase increased [Unknown]
